FAERS Safety Report 9317833 (Version 1)
Quarter: 2013Q2

REPORT INFORMATION
  Report Type: Spontaneous
  Country: US (occurrence: US)
  Receive Date: 20130530
  Receipt Date: 20130530
  Transmission Date: 20140414
  Serious: No
  Sender: FDA-Public Use
  Company Number: US-GLAXOSMITHKLINE-A0987200A

PATIENT
  Age: 74 Year
  Sex: Female

DRUGS (6)
  1. VENTOLIN [Suspect]
     Indication: ASTHMA
     Dosage: 1PUFF TWICE PER DAY
     Route: 055
     Dates: start: 1978
  2. UNSPECIFIED [Concomitant]
     Route: 004
  3. MICARDIS [Concomitant]
  4. NEXIUM [Concomitant]
  5. VITAMIN D2 [Concomitant]
  6. ALPRAZOLAM [Concomitant]

REACTIONS (1)
  - Candida infection [Recovered/Resolved]
